FAERS Safety Report 25368580 (Version 2)
Quarter: 2025Q2

REPORT INFORMATION
  Report Type: Spontaneous
  Country: TR (occurrence: TR)
  Receive Date: 20250528
  Receipt Date: 20250603
  Transmission Date: 20250716
  Serious: Yes (Other)
  Sender: PFIZER
  Company Number: TR-PFIZER INC-PV202500063623

PATIENT
  Age: 49 Year
  Sex: Male

DRUGS (1)
  1. ELREXFIO [Suspect]
     Active Substance: ELRANATAMAB-BCMM

REACTIONS (15)
  - Hypoxia [Unknown]
  - Capillary leak syndrome [Unknown]
  - Circulatory collapse [Unknown]
  - Opportunistic infection [Unknown]
  - Pyrexia [Unknown]
  - Hypotension [Unknown]
  - Tachycardia [Unknown]
  - Headache [Unknown]
  - Tremor [Unknown]
  - Asthenia [Unknown]
  - Myalgia [Unknown]
  - Infection [Unknown]
  - Nausea [Unknown]
  - Infection reactivation [Unknown]
  - Decreased appetite [Unknown]
